FAERS Safety Report 5775032-1 (Version None)
Quarter: 2008Q2

REPORT INFORMATION
  Report Type: 
  Country: None (occurrence: None)
  Receive Date: 20080617
  Receipt Date: 20080617
  Transmission Date: 20081010
  Serious: No
  Sender: FDA-Public Use
  Company Number: None

PATIENT
  Age: 54 Year
  Sex: Male

DRUGS (8)
  1. HEPARIN [Suspect]
     Indication: PROPHYLAXIS
     Dosage: 5000 UNITS SQ Q 8
     Route: 058
     Dates: start: 20080413, end: 20080415
  2. CEFEPIME [Concomitant]
  3. LANSOPRAZOLE [Concomitant]
  4. METOPROLOL [Concomitant]
  5. METRONIDAZOLE [Concomitant]
  6. ZOSYN [Concomitant]
  7. VANCOMYCIN HCL [Concomitant]
  8. AMIODARONE HCL [Concomitant]

REACTIONS (1)
  - PLATELET COUNT DECREASED [None]
